FAERS Safety Report 5325922-9 (Version None)
Quarter: 2007Q2

REPORT INFORMATION
  Report Type: 
  Country: None (occurrence: None)
  Receive Date: 20070516
  Receipt Date: 20070510
  Transmission Date: 20071010
  Serious: Yes (Other)
  Sender: FDA-Public Use
  Company Number: PHEH2007US04141

PATIENT
  Age: 29 Year
  Sex: Male
  Weight: 90.249 kg

DRUGS (3)
  1. ZELNORM [Suspect]
     Indication: IRRITABLE BOWEL SYNDROME
     Dosage: 6 MG, BID
     Route: 048
     Dates: start: 20060615, end: 20060901
  2. ZELNORM [Suspect]
     Dosage: 6 MG, BID
     Route: 048
     Dates: start: 20060901, end: 20070412
  3. XANAX [Concomitant]

REACTIONS (5)
  - CARDIAC STRESS TEST ABNORMAL [None]
  - CHEST PAIN [None]
  - DYSPNOEA [None]
  - MITRAL VALVE PROLAPSE [None]
  - STRESS [None]
